FAERS Safety Report 7342509-7 (Version None)
Quarter: 2011Q1

REPORT INFORMATION
  Report Type: 
  Country: None (occurrence: None)
  Receive Date: 20110310
  Receipt Date: 20110308
  Transmission Date: 20110831
  Serious: Yes (Other)
  Sender: FDA-Public Use
  Company Number: US-PFIZER INC-2011051216

PATIENT
  Sex: Female
  Weight: 77 kg

DRUGS (2)
  1. CHANTIX [Suspect]
     Indication: SMOKING CESSATION THERAPY
     Dosage: 0.5 MG, 1X/DAY
     Route: 048
     Dates: start: 20110210, end: 20110213
  2. AUGMENTIN '125' [Concomitant]
     Indication: NASOPHARYNGITIS
     Dosage: UNK

REACTIONS (2)
  - RASH GENERALISED [None]
  - ABDOMINAL PAIN UPPER [None]
